FAERS Safety Report 6250897-8 (Version None)
Quarter: 2009Q2

REPORT INFORMATION
  Report Type: 
  Country: None (occurrence: None)
  Receive Date: 20090630
  Receipt Date: 20090519
  Transmission Date: 20091009
  Serious: No
  Sender: FDA-Public Use
  Company Number: US-BAUSCH-2009BL002486

PATIENT
  Age: 48 Year
  Sex: Female

DRUGS (1)
  1. ALAWAY [Suspect]
     Indication: SEASONAL ALLERGY
     Route: 047
     Dates: start: 20090317, end: 20090331

REACTIONS (1)
  - PAIN OF SKIN [None]
